FAERS Safety Report 19416118 (Version 1)
Quarter: 2021Q2

REPORT INFORMATION
  Report Type: Other
  Country: FR (occurrence: FR)
  Receive Date: 20210614
  Receipt Date: 20210614
  Transmission Date: 20210717
  Serious: Yes (Other)
  Sender: FDA-Public Use
  Company Number: FR-ROCHE-2844409

PATIENT

DRUGS (1)
  1. TOCILIZUMAB. [Suspect]
     Active Substance: TOCILIZUMAB
     Indication: RENAL TRANSPLANT
     Route: 042

REACTIONS (10)
  - Arteriovenous fistula thrombosis [Unknown]
  - Haemorrhoidal haemorrhage [Unknown]
  - Leukopenia [Recovered/Resolved]
  - Headache [Unknown]
  - Hypotension [Unknown]
  - Vomiting [Unknown]
  - Intervertebral discitis [Recovered/Resolved]
  - Thrombocytopenia [Recovered/Resolved]
  - Epstein-Barr virus infection reactivation [Unknown]
  - Alanine aminotransferase increased [Recovered/Resolved]
